FAERS Safety Report 7106325-3 (Version None)
Quarter: 2010Q4

REPORT INFORMATION
  Report Type: 
  Country: None (occurrence: None)
  Receive Date: 20101116
  Receipt Date: 20101105
  Transmission Date: 20110411
  Serious: Yes (Hospitalization, Other)
  Sender: FDA-Public Use
  Company Number: US-JNJFOC-20100708434

PATIENT
  Sex: Female

DRUGS (3)
  1. LEVAQUIN [Suspect]
     Indication: INFECTION
     Route: 048
  2. CORTISONE [Suspect]
     Indication: PAIN IN EXTREMITY
     Route: 050
  3. TEQUIN [Suspect]
     Indication: EYE INFECTION

REACTIONS (6)
  - DEEP VEIN THROMBOSIS [None]
  - EXOSTOSIS [None]
  - EYE INJURY [None]
  - MACULAR SCAR [None]
  - PAIN IN EXTREMITY [None]
  - TENDONITIS [None]
